FAERS Safety Report 9668158 (Version 2)
Quarter: 2013Q4

REPORT INFORMATION
  Report Type: Spontaneous
  Country: US (occurrence: US)
  Receive Date: 20131104
  Receipt Date: 20131118
  Transmission Date: 20140711
  Serious: No
  Sender: FDA-Public Use
  Company Number: US-PFIZER INC-2013310543

PATIENT
  Sex: Female

DRUGS (2)
  1. PREMARIN [Suspect]
     Indication: UTERINE DISORDER
     Dosage: UNK
     Route: 067
     Dates: start: 2013
  2. ESTRACE [Suspect]
     Dosage: UNK

REACTIONS (1)
  - Alopecia [Unknown]
